FAERS Safety Report 9324541 (Version 3)
Quarter: 2014Q1

REPORT INFORMATION
  Report Type: Spontaneous
  Country: US (occurrence: US)
  Receive Date: 20130603
  Receipt Date: 20140109
  Transmission Date: 20141002
  Serious: Yes (Hospitalization)
  Sender: FDA-Public Use
  Company Number: US-B.I. PHARMACEUTICALS,INC./RIDGEFIELD-2013-BI-15310BP

PATIENT
  Sex: Male
  Weight: 112.94 kg

DRUGS (10)
  1. PRADAXA [Suspect]
     Indication: ATRIAL FIBRILLATION
     Dosage: 300 MG
     Dates: start: 20110106, end: 20110525
  2. JANUMET [Concomitant]
  3. GLYBURIDE [Concomitant]
     Dates: start: 2010, end: 2012
  4. INSULIN [Concomitant]
  5. ASCRIPTION ENTERIC [Concomitant]
  6. COLACE [Concomitant]
  7. FIBER TAB [Concomitant]
  8. ALEVE [Concomitant]
  9. METFORMIN [Concomitant]
     Dates: start: 2010
  10. LANTUS [Concomitant]

REACTIONS (2)
  - Gastrointestinal haemorrhage [Unknown]
  - Anaemia [Unknown]
